FAERS Safety Report 11930354 (Version 1)
Quarter: 2016Q1

REPORT INFORMATION
  Report Type: Spontaneous
  Country: US (occurrence: US)
  Receive Date: 20160120
  Receipt Date: 20160120
  Transmission Date: 20160526
  Serious: Yes (Other)
  Sender: FDA-Public Use
  Company Number: US-PFIZER INC-2016021562

PATIENT
  Age: 52 Year
  Sex: Female

DRUGS (1)
  1. RAPAMUNE [Suspect]
     Active Substance: SIROLIMUS
     Indication: TRANSPLANT REJECTION
     Dosage: 5 MG, DAILY
     Route: 048
     Dates: start: 201305

REACTIONS (2)
  - Visual impairment [Unknown]
  - Renal failure [Unknown]
